FAERS Safety Report 8736612 (Version 3)
Quarter: 2012Q4

REPORT INFORMATION
  Report Type: 
  Country: JP (occurrence: JP)
  Receive Date: 20120822
  Receipt Date: 20121204
  Transmission Date: 20130627
  Serious: Yes (Hospitalization)
  Sender: FDA-Public Use
  Company Number: JP-GLAXOSMITHKLINE-B0824060A

PATIENT
  Age: 89 Year
  Sex: Female

DRUGS (15)
  1. ARIXTRA [Suspect]
     Indication: FEMUR FRACTURE
     Dosage: 1.5MG Per day
     Route: 058
     Dates: start: 20120803
  2. THYRADIN S [Concomitant]
     Route: 048
  3. ARICEPT [Concomitant]
     Route: 048
  4. TAKEPRON [Concomitant]
     Route: 065
  5. LANSOPRAZOLE [Concomitant]
     Route: 048
  6. PURSENNID [Concomitant]
     Route: 048
  7. AROFUTO [Concomitant]
     Route: 048
  8. MYONAL [Concomitant]
     Route: 048
  9. LUVOX [Concomitant]
     Route: 048
  10. WYPAX [Concomitant]
     Route: 048
  11. RIVOTRIL [Concomitant]
     Route: 048
  12. NE-SOFT [Concomitant]
     Route: 048
  13. JUVELA N [Concomitant]
     Route: 048
  14. XALATAN [Concomitant]
     Route: 031
  15. TIMOPTOL [Concomitant]
     Route: 031

REACTIONS (6)
  - Sepsis [Recovering/Resolving]
  - Pyrexia [Unknown]
  - White blood cell count increased [Unknown]
  - C-reactive protein increased [Unknown]
  - Blood culture positive [Unknown]
  - Urinary tract infection [Unknown]
